FAERS Safety Report 26203052 (Version 1)
Quarter: 2025Q4

REPORT INFORMATION
  Report Type: Spontaneous
  Country: MX (occurrence: MX)
  Receive Date: 20251226
  Receipt Date: 20251226
  Transmission Date: 20260118
  Serious: Yes (Life-Threatening, Hospitalization)
  Sender: ACCORD
  Company Number: MX-MLMSERVICE-20251205-PI741147-00295-1

PATIENT
  Age: 17 Year
  Sex: Female

DRUGS (5)
  1. CLONAZEPAM [Interacting]
     Active Substance: CLONAZEPAM
     Route: 048
  2. SERTRALINE [Interacting]
     Active Substance: SERTRALINE HYDROCHLORIDE
     Route: 048
  3. TRAMADOL [Interacting]
     Active Substance: TRAMADOL
     Route: 048
  4. FENTANYL [Interacting]
     Active Substance: FENTANYL
     Indication: Product used for unknown indication
  5. MIDAZOLAM [Concomitant]
     Active Substance: MIDAZOLAM
     Dosage: INFUSION

REACTIONS (4)
  - Cardiac arrest [Recovered/Resolved]
  - Serotonin syndrome [Unknown]
  - Overdose [Unknown]
  - Drug interaction [Unknown]
